FAERS Safety Report 5727805-9 (Version None)
Quarter: 2008Q2

REPORT INFORMATION
  Report Type: 
  Country: None (occurrence: None)
  Receive Date: 20080505
  Receipt Date: 20080501
  Transmission Date: 20081010
  Serious: Yes (Hospitalization, Disabling)
  Sender: FDA-Public Use
  Company Number: US-ALLERGAN-0805258US

PATIENT
  Sex: Female

DRUGS (1)
  1. BOTOX [Suspect]
     Indication: TORTICOLLIS
     Dosage: 300 UNITS, SINGLE
     Route: 030
     Dates: start: 20071201, end: 20071201

REACTIONS (11)
  - ASTHENIA [None]
  - BALANCE DISORDER [None]
  - FALL [None]
  - FEAR [None]
  - INJECTION SITE INJURY [None]
  - MALAISE [None]
  - MUSCULAR WEAKNESS [None]
  - PAIN [None]
  - SYNCOPE [None]
  - TREMOR [None]
  - VISION BLURRED [None]
